FAERS Safety Report 4359512-1 (Version None)
Quarter: 2004Q2

REPORT INFORMATION
  Report Type: 
  Country: None (occurrence: None)
  Receive Date: 20040511
  Receipt Date: 20040429
  Transmission Date: 20050107
  Serious: Yes (Other)
  Sender: FDA-Public Use
  Company Number: REL-RIR-120

PATIENT
  Age: 65 Year
  Sex: Male

DRUGS (5)
  1. RYTHMOL [Suspect]
     Indication: ATRIAL FIBRILLATION
     Dosage: 300 MG QD ORAL
     Route: 048
     Dates: start: 20040101, end: 20040101
  2. ISOSORBIDE MONONITRATE [Concomitant]
  3. SOMALGIM [Concomitant]
  4. PROPATYLNITRATE [Concomitant]
  5. CLOXAZOLAM [Concomitant]

REACTIONS (1)
  - ABDOMINAL PAIN [None]
